FAERS Safety Report 10467196 (Version 3)
Quarter: 2015Q1

REPORT INFORMATION
  Report Type: Spontaneous
  Country: US (occurrence: US)
  Receive Date: 20140922
  Receipt Date: 20150327
  Transmission Date: 20150720
  Serious: Yes (Death, Hospitalization, Other)
  Sender: FDA-Public Use
  Company Number: US-009507513-1409USA009881

PATIENT
  Sex: Female
  Weight: 179 kg

DRUGS (1)
  1. JANUVIA [Suspect]
     Active Substance: SITAGLIPTIN PHOSPHATE
     Indication: TYPE 2 DIABETES MELLITUS
     Dosage: 50 MG, QD
     Route: 048
     Dates: start: 20091223, end: 20120925

REACTIONS (42)
  - Arteriosclerosis coronary artery [Unknown]
  - Gastric disorder [Unknown]
  - Renal cyst [Unknown]
  - Inflammation [Unknown]
  - Renal disorder [Unknown]
  - Metastases to bone [Unknown]
  - Hip arthroplasty [Unknown]
  - Aortic arteriosclerosis [Unknown]
  - Gallbladder disorder [Unknown]
  - Bronchitis [Recovering/Resolving]
  - Pancreatic carcinoma metastatic [Fatal]
  - Metastases to lung [Unknown]
  - Pulmonary mass [Unknown]
  - Chest pain [Unknown]
  - Atelectasis [Unknown]
  - Diverticulum intestinal [Unknown]
  - Renal haemorrhage [Unknown]
  - Fluid overload [Unknown]
  - Hypertension [Unknown]
  - Atrial fibrillation [Unknown]
  - Pancytopenia [Unknown]
  - Pleural fibrosis [Unknown]
  - Pleural calcification [Unknown]
  - Spinal deformity [Unknown]
  - Hypothyroidism [Unknown]
  - Proteinuria [Unknown]
  - Metastases to abdominal wall [Unknown]
  - Cardiac failure congestive [Unknown]
  - Osteoarthritis [Unknown]
  - Hypotension [Unknown]
  - Stress [Unknown]
  - Arteriosclerosis [Unknown]
  - Chronic obstructive pulmonary disease [Not Recovered/Not Resolved]
  - Oral fungal infection [Unknown]
  - Renal cell carcinoma [Unknown]
  - Pneumonia [Unknown]
  - Staphylococcal infection [Unknown]
  - Hyperplastic cholecystopathy [Unknown]
  - Splenic injury [Unknown]
  - Leukopenia [Unknown]
  - Sinusitis [Unknown]
  - Anxiety [Unknown]

NARRATIVE: CASE EVENT DATE: 20100102
